FAERS Safety Report 21696874 (Version 2)
Quarter: 2023Q2

REPORT INFORMATION
  Report Type: Report from Study
  Country: DE (occurrence: DE)
  Receive Date: 20221208
  Receipt Date: 20230601
  Transmission Date: 20230722
  Serious: Yes (Hospitalization, Other)
  Sender: FDA-Public Use
  Company Number: DE-002147023-NVSC2020DE341364

PATIENT
  Sex: Female

DRUGS (2)
  1. COSENTYX [Suspect]
     Active Substance: SECUKINUMAB
     Indication: Psoriatic arthropathy
     Dosage: 150 MG
     Route: 065
     Dates: start: 20200212, end: 20200318
  2. COSENTYX [Suspect]
     Active Substance: SECUKINUMAB
     Dosage: 150 MG, QMO (EVERY 4 WEEKS)
     Route: 065
     Dates: start: 20200417

REACTIONS (7)
  - Cholelithiasis [Recovered/Resolved]
  - Abscess jaw [Unknown]
  - Impaired healing [Unknown]
  - Influenza like illness [Unknown]
  - Phlebitis superficial [Unknown]
  - COVID-19 [Unknown]
  - Foot fracture [Unknown]

NARRATIVE: CASE EVENT DATE: 20200922
